FAERS Safety Report 5501022-X (Version None)
Quarter: 2007Q4

REPORT INFORMATION
  Report Type: 
  Country: None (occurrence: None)
  Receive Date: 20071029
  Receipt Date: 20071022
  Transmission Date: 20080405
  Serious: Yes (Other)
  Sender: FDA-Public Use
  Company Number: PHEH2004US05800

PATIENT

DRUGS (6)
  1. ASCORBIC ACID [Concomitant]
  2. VITAMIN E [Concomitant]
  3. ASPIRIN [Concomitant]
  4. DIOVAN HCT [Suspect]
     Indication: HYPERTENSION
     Dosage: 1 DF, QD
     Route: 048
     Dates: start: 20040201
  5. DIOVAN HCT [Suspect]
     Dosage: 80MG VAL/12.5MG HCT, UNK
  6. GLUCOSAMINE [Concomitant]

REACTIONS (4)
  - CARDIAC FLUTTER [None]
  - EXTRASYSTOLES [None]
  - HEART RATE IRREGULAR [None]
  - PALPITATIONS [None]
